FAERS Safety Report 21702941 (Version 2)
Quarter: 2022Q4

REPORT INFORMATION
  Report Type: Spontaneous
  Country: CA (occurrence: CA)
  Receive Date: 20221209
  Receipt Date: 20221213
  Transmission Date: 20230113
  Serious: Yes (Other)
  Sender: FDA-Public Use
  Company Number: CA-CELLTRION INC.-2022CA014390

PATIENT

DRUGS (28)
  1. INFLIXIMAB [Suspect]
     Active Substance: INFLIXIMAB
     Indication: Rheumatoid arthritis
     Dosage: 120 MILLIGRAM PER MILLILITRE, Q2WEEKS
     Route: 058
     Dates: start: 20220208
  2. INFLIXIMAB [Suspect]
     Active Substance: INFLIXIMAB
     Dosage: 120 MILLIGRAM PER MILLILITRE, Q2WEEKS
     Route: 058
     Dates: start: 20220825
  3. EMOLAX [SODIUM PICOSULFATE] [Concomitant]
  4. PERINDOPRIL ERBUMINE [Concomitant]
     Active Substance: PERINDOPRIL ERBUMINE
  5. CLOZAPINE [Concomitant]
     Active Substance: CLOZAPINE
  6. CITALOPRAM [Concomitant]
     Active Substance: CITALOPRAM HYDROBROMIDE
  7. SYNTHROID [Concomitant]
     Active Substance: LEVOTHYROXINE SODIUM
  8. OXYBUTYNIN [Concomitant]
     Active Substance: OXYBUTYNIN
  9. CYANOCOBALAMIN [Concomitant]
     Active Substance: CYANOCOBALAMIN
  10. TAMSULOSIN [Concomitant]
     Active Substance: TAMSULOSIN
  11. DUTASTERIDE [Concomitant]
     Active Substance: DUTASTERIDE
  12. METHOTREXATE [Concomitant]
     Active Substance: METHOTREXATE
  13. PREDNISONE [Concomitant]
     Active Substance: PREDNISONE
  14. ATORVASTATIN [Concomitant]
     Active Substance: ATORVASTATIN
  15. MCAL [Concomitant]
  16. QUETIAPINE [Concomitant]
     Active Substance: QUETIAPINE
  17. SULFASALAZINE [Concomitant]
     Active Substance: SULFASALAZINE
  18. FOLIC ACID [Concomitant]
     Active Substance: FOLIC ACID
  19. PANTOPRAZOLE [Concomitant]
     Active Substance: PANTOPRAZOLE
  20. DOCUSATE SODIUM [Concomitant]
     Active Substance: DOCUSATE SODIUM
  21. ASPIRIN [Concomitant]
     Active Substance: ASPIRIN
  22. BISOPROLOL [Concomitant]
     Active Substance: BISOPROLOL
  23. LORAZEPAM [Concomitant]
     Active Substance: LORAZEPAM
  24. ACETAMINOPHEN [Concomitant]
     Active Substance: ACETAMINOPHEN
     Dosage: UNK
  25. ALENDRONATE [Concomitant]
     Active Substance: ALENDRONATE SODIUM
  26. SYSTANE (HYPROMELLOSE 2910 (4000 MPA.S)) [Concomitant]
     Active Substance: HYPROMELLOSE 2910 (4000 MPA.S)
  27. GLYCERIN [Concomitant]
     Active Substance: GLYCERIN
     Dosage: PRN
  28. BISACODYL [Concomitant]
     Active Substance: BISACODYL
     Dosage: PRN

REACTIONS (4)
  - COVID-19 [Recovering/Resolving]
  - Product distribution issue [Unknown]
  - Product availability issue [Unknown]
  - Therapy interrupted [Unknown]

NARRATIVE: CASE EVENT DATE: 20220825
